FAERS Safety Report 21967116 (Version 1)
Quarter: 2023Q1

REPORT INFORMATION
  Report Type: Report from Study
  Country: MX (occurrence: MX)
  Receive Date: 20230208
  Receipt Date: 20230208
  Transmission Date: 20230418
  Serious: Yes (Other)
  Sender: FDA-Public Use
  Company Number: MX-002147023-NVSC2023MX027177

PATIENT
  Sex: Male
  Weight: 104 kg

DRUGS (1)
  1. TEGRETOL [Suspect]
     Active Substance: CARBAMAZEPINE
     Indication: Epilepsy
     Dosage: 1.5 DOSAGE FORM, TID, EVERY 8 HOURS, MORNING, AFTERNOON AND NIGHT (AT THE AGE OF 16)
     Route: 048

REACTIONS (2)
  - Intervertebral disc protrusion [Recovered/Resolved]
  - Wrong technique in product usage process [Not Recovered/Not Resolved]
